FAERS Safety Report 9798663 (Version 1)
Quarter: 2014Q1

REPORT INFORMATION
  Report Type: Spontaneous
  Country: US (occurrence: US)
  Receive Date: 20140106
  Receipt Date: 20140106
  Transmission Date: 20141002
  Serious: Yes (Hospitalization)
  Sender: FDA-Public Use
  Company Number: US-GILEAD-2010-0029671

PATIENT
  Age: 47 Year
  Sex: Female
  Weight: 90.72 kg

DRUGS (14)
  1. LETAIRIS [Suspect]
     Indication: PULMONARY ARTERIAL HYPERTENSION
     Route: 048
     Dates: start: 20090109
  2. ASA [Concomitant]
  3. ALDACTONE [Concomitant]
  4. DEMADEX [Concomitant]
  5. PROAIR HFA [Concomitant]
  6. ZAROXOLYN [Concomitant]
  7. HUMALOG [Concomitant]
  8. LANTUS [Concomitant]
  9. FLEXERIL [Concomitant]
  10. PAXIL [Concomitant]
  11. NEURONTIN [Concomitant]
  12. HYDROCODONE W/APAP [Concomitant]
  13. K-DUR [Concomitant]
  14. FOLIC ACID [Concomitant]

REACTIONS (1)
  - Oedema [Recovered/Resolved]
